FAERS Safety Report 8019921-6 (Version None)
Quarter: 2012Q1

REPORT INFORMATION
  Report Type: 
  Country: None (occurrence: None)
  Receive Date: 20120103
  Receipt Date: 20111227
  Transmission Date: 20120608
  Serious: Yes (Other)
  Sender: FDA-Public Use
  Company Number: US-BAYER-201031632NA

PATIENT
  Age: 26 Year
  Sex: Female
  Weight: 109 kg

DRUGS (2)
  1. DROSPIRENONE AND ETHINYL ESTRADIOL [Suspect]
     Indication: CONTRACEPTION
  2. YAZ [Suspect]
     Indication: CONTRACEPTION
     Dosage: UNK
     Route: 048
     Dates: start: 20080428, end: 20081115

REACTIONS (3)
  - GALLBLADDER DISORDER [None]
  - ABORTION SPONTANEOUS [None]
  - CHOLECYSTITIS ACUTE [None]
